FAERS Safety Report 9238917 (Version 2)
Quarter: 2013Q2

REPORT INFORMATION
  Report Type: Report from Study
  Country: JP (occurrence: JP)
  Receive Date: 20130418
  Receipt Date: 20130429
  Transmission Date: 20140414
  Serious: Yes (Hospitalization)
  Sender: FDA-Public Use
  Company Number: JP-EISAI INC-E2020-12209-SOL-JP

PATIENT
  Age: 78 Year
  Sex: Female
  Weight: 45.6 kg

DRUGS (6)
  1. DONEPEZIL [Suspect]
     Indication: DEMENTIA ALZHEIMER^S TYPE
     Dosage: DOUBLE-BLIND
     Route: 048
     Dates: start: 20130314, end: 20130410
  2. DONEPEZIL [Suspect]
     Dosage: DOUBLE-BLIND
     Route: 048
     Dates: start: 20130412
  3. AMLODIPINE [Concomitant]
     Indication: HYPERTENSION
     Dosage: 2.5 MG X1
     Route: 048
     Dates: start: 20100316, end: 20130411
  4. MAGMITT [Concomitant]
     Indication: CONSTIPATION
     Dosage: 330 MG X1
     Route: 048
     Dates: start: 20100316, end: 20130411
  5. BAYASPIRIN [Concomitant]
     Indication: THROMBOSIS PROPHYLAXIS
     Dosage: 100 MG X1
     Route: 048
     Dates: start: 20101120
  6. PERIZELIN [Concomitant]
     Indication: PROPHYLAXIS OF NAUSEA AND VOMITING
     Dosage: 10 MG X1
     Route: 048
     Dates: start: 20110115, end: 20130411

REACTIONS (1)
  - Convulsion [Not Recovered/Not Resolved]
